FAERS Safety Report 9423498 (Version 1)
Quarter: 2013Q3

REPORT INFORMATION
  Report Type: Spontaneous
  Country: JP (occurrence: JP)
  Receive Date: 20130726
  Receipt Date: 20130726
  Transmission Date: 20140515
  Serious: Yes (Death, Life-Threatening)
  Sender: FDA-Public Use
  Company Number: JP-ASTRAZENECA-2013SE52904

PATIENT
  Age: 40 Year
  Sex: Female

DRUGS (7)
  1. NEXIUM [Suspect]
     Indication: PROPHYLAXIS AGAINST GASTROINTESTINAL ULCER
     Route: 048
     Dates: start: 201307
  2. DIFLUCAN [Concomitant]
     Route: 041
     Dates: start: 201307
  3. OTHER ANTITUMOR AGENTS [Concomitant]
     Route: 065
  4. ANTIPYRETICS [Concomitant]
     Route: 065
  5. SYNTHETIC ANTIBACTERIALS [Concomitant]
     Route: 065
  6. ANALGESICS [Concomitant]
  7. ANTI-INFLAMMATORY AGENTS [Concomitant]

REACTIONS (1)
  - Agranulocytosis [Fatal]
